FAERS Safety Report 6301124 (Version 3)
Quarter: 2017Q3

REPORT INFORMATION
  Report Type: Spontaneous
  Country: US (occurrence: US)
  Receive Date: 20061011
  Receipt Date: 20170928
  Transmission Date: 20171128
  Serious: Yes (Hospitalization, Other)
  Sender: FDA-Public Use
  Company Number: US-PFIZER INC-2006121971

PATIENT
  Age: 69 Year
  Sex: Female
  Weight: 71 kg

DRUGS (2)
  1. CELEBREX [Suspect]
     Active Substance: CELECOXIB
     Indication: PAIN MANAGEMENT
     Dosage: 200 MG, UNK
     Dates: start: 20010802, end: 20030730
  2. VIOXX [Suspect]
     Active Substance: ROFECOXIB
     Dosage: UNK
     Dates: start: 20030731, end: 20040930

REACTIONS (2)
  - Insomnia [Unknown]
  - Ischaemic stroke [Unknown]

NARRATIVE: CASE EVENT DATE: 20040525
